FAERS Safety Report 19598133 (Version 1)
Quarter: 2021Q3

REPORT INFORMATION
  Report Type: Spontaneous
  Country: US (occurrence: US)
  Receive Date: 20210722
  Receipt Date: 20210722
  Transmission Date: 20211014
  Serious: No
  Sender: FDA-Public Use
  Company Number: None

PATIENT
  Age: 75 Year
  Sex: Male

DRUGS (1)
  1. ENOXAPARIN (GENERIC) (ENOXAPARIN 100MG/ML INJ(GENERIC)) [Suspect]
     Active Substance: ENOXAPARIN
     Dates: start: 20210401, end: 20210624

REACTIONS (2)
  - Musculoskeletal pain [None]
  - Haemorrhage [None]

NARRATIVE: CASE EVENT DATE: 20210626
